FAERS Safety Report 5748819-9 (Version None)
Quarter: 2008Q2

REPORT INFORMATION
  Report Type: 
  Country: None (occurrence: None)
  Receive Date: 20080522
  Receipt Date: 20080505
  Transmission Date: 20081010
  Serious: Yes (Hospitalization)
  Sender: FDA-Public Use
  Company Number: 2008AL003428

PATIENT
  Age: 78 Year
  Sex: Female
  Weight: 51.7101 kg

DRUGS (5)
  1. DIGOXIN [Suspect]
     Indication: ARRHYTHMIA
     Dosage: DAILY, PO
     Route: 048
     Dates: start: 20060101
  2. LANOXIN [Concomitant]
  3. TENORMIN [Concomitant]
  4. ELAVIL [Concomitant]
  5. KLONOPIN [Concomitant]

REACTIONS (1)
  - CHEST DISCOMFORT [None]
